FAERS Safety Report 5646783-4 (Version None)
Quarter: 2008Q1

REPORT INFORMATION
  Report Type: 
  Country: None (occurrence: None)
  Receive Date: 20080303
  Receipt Date: 20080225
  Transmission Date: 20080703
  Serious: Yes (Death)
  Sender: FDA-Public Use
  Company Number: DE-AVENTIS-200810558DE

PATIENT
  Age: 71 Year
  Sex: Female

DRUGS (69)
  1. CLEXANE [Suspect]
     Indication: THROMBOSIS PROPHYLAXIS
     Route: 058
     Dates: start: 20041011, end: 20041028
  2. DELIX                              /00885601/ [Suspect]
     Indication: HYPERTENSION
     Route: 048
     Dates: start: 20041007, end: 20041031
  3. LORAZEPAM [Suspect]
     Indication: SLEEP DISORDER
     Dosage: DOSE: 1 TABLET
     Route: 048
     Dates: start: 20041014, end: 20041014
  4. LORAZEPAM [Suspect]
     Dosage: DOSE: 1 TABLET
     Route: 048
     Dates: start: 20041030, end: 20041030
  5. BELOC-ZOK [Suspect]
     Indication: ACUTE MYOCARDIAL INFARCTION
     Dosage: DOSE: 3X1 TABLET
     Route: 048
     Dates: start: 20041012, end: 20041031
  6. DISALUNIL [Suspect]
     Indication: HYPERTENSION
     Route: 048
     Dates: start: 20041012, end: 20041031
  7. PANTOZOL                           /01263202/ [Suspect]
     Indication: GASTRIC DISORDER
     Route: 048
     Dates: start: 20041007, end: 20041031
  8. PANTOZOL                           /01263202/ [Suspect]
     Indication: PROPHYLAXIS
     Route: 048
     Dates: start: 20041007, end: 20041031
  9. TORSEMIDE [Suspect]
     Indication: RENAL FAILURE
     Dosage: DOSE: 1-0-1, 2-0-2, 1-0-0
     Route: 048
     Dates: start: 20041012, end: 20041031
  10. TORSEMIDE [Suspect]
     Dosage: DOSE: 1-0-1, 2-0-2, 1-0-0
     Route: 048
     Dates: start: 20041102, end: 20041105
  11. IRENAT [Suspect]
     Indication: HYPERTHYROIDISM
     Route: 048
     Dates: start: 20041006, end: 20041105
  12. THIAMAZOL [Suspect]
     Indication: HYPERTHYROIDISM
     Dosage: DOSE: 2-0-0, 1-0-0
     Route: 048
     Dates: start: 20041006, end: 20041105
  13. ISCOVER [Suspect]
     Indication: THROMBOSIS PROPHYLAXIS
     Route: 048
     Dates: start: 20041005, end: 20041107
  14. DIGITOXIN INJ [Suspect]
     Indication: CARDIAC FAILURE
     Dosage: DOSE: 0-1-0, 2-2-2, 1-0-0
     Route: 048
     Dates: start: 20041014, end: 20041027
  15. DIGITOXIN INJ [Suspect]
     Dosage: DOSE: 0-1-0, 2-2-2, 1-0-0
     Route: 048
     Dates: start: 20041103
  16. MCP DROPS [Suspect]
     Indication: NAUSEA
     Route: 048
     Dates: start: 20041023, end: 20041023
  17. MCP DROPS [Suspect]
     Route: 048
     Dates: start: 20041025, end: 20041028
  18. ALLOPURINOL [Suspect]
     Indication: HYPERURICAEMIA
     Dosage: DOSE: 1 TABLET
     Route: 048
     Dates: start: 20041024, end: 20041102
  19. EUNERPAN [Suspect]
     Indication: SLEEP DISORDER
     Route: 048
     Dates: start: 20041030, end: 20041031
  20. EUNERPAN [Suspect]
     Route: 048
     Dates: start: 20041102, end: 20041107
  21. LOPERAMID [Suspect]
     Indication: DIARRHOEA
     Route: 048
     Dates: start: 20041031, end: 20041031
  22. CARBIUM [Suspect]
     Indication: AGITATION
     Dosage: DOSE: 2X1/2 TABLET
     Route: 048
     Dates: start: 20041101, end: 20041102
  23. TAZOBAC                            /01173601/ [Concomitant]
     Indication: PNEUMONIA
     Route: 042
     Dates: start: 20041007, end: 20041015
  24. PERFALGAN [Concomitant]
     Indication: PYREXIA
     Route: 042
     Dates: start: 20041014, end: 20041014
  25. PERFALGAN [Concomitant]
     Route: 042
     Dates: start: 20041021, end: 20041021
  26. RED BLOOD CELLS [Concomitant]
     Indication: HAEMOGLOBIN DECREASED
     Dosage: DOSE: 2 BLOOD BOTTLES
     Route: 042
     Dates: start: 20041004, end: 20041031
  27. SORTIS                             /01326101/ [Concomitant]
     Indication: HYPERCHOLESTEROLAEMIA
     Route: 048
     Dates: start: 20040729, end: 20041102
  28. ASPIRIN [Concomitant]
     Indication: THROMBOSIS PROPHYLAXIS
     Route: 048
     Dates: start: 20040729, end: 20041107
  29. LANTUS [Concomitant]
     Indication: DIABETES MELLITUS
     Dosage: DOSE: 60/30
     Route: 058
     Dates: start: 20040729, end: 20041110
  30. HUMALOG [Concomitant]
     Indication: DIABETES MELLITUS
     Dosage: DOSE: 24-24-26
     Route: 058
     Dates: start: 20040729, end: 20041110
  31. KALINOR                            /00031402/ [Concomitant]
     Indication: HYPOKALAEMIA
     Dosage: DOSE: 1 TABLET
     Route: 048
     Dates: start: 20041015, end: 20041020
  32. KALINOR                            /00031402/ [Concomitant]
     Dosage: DOSE: 1 TABLET
     Route: 048
     Dates: start: 20041023, end: 20041025
  33. KALINOR                            /00031402/ [Concomitant]
     Dosage: DOSE: 1 TABLET
     Route: 048
     Dates: start: 20041102, end: 20041104
  34. LENDORMIN [Concomitant]
     Indication: SLEEP DISORDER
     Route: 048
     Dates: start: 20041015, end: 20041024
  35. LENDORMIN [Concomitant]
     Route: 048
     Dates: start: 20041103, end: 20041103
  36. LENDORMIN [Concomitant]
     Route: 048
     Dates: start: 20041110, end: 20041110
  37. NOVALGIN                           /00039501/ [Concomitant]
     Indication: PAIN
     Route: 048
     Dates: start: 20041017, end: 20041017
  38. ROHYPNOL [Concomitant]
     Indication: AGITATION
     Route: 048
     Dates: start: 20041018, end: 20041018
  39. KLACID                             /00984601/ [Concomitant]
     Indication: PNEUMONIA
     Route: 048
     Dates: start: 20041018, end: 20041024
  40. MCP [Concomitant]
     Indication: NAUSEA
     Dosage: DOSE: 1 AMPOULE
     Route: 042
     Dates: start: 20041024, end: 20041025
  41. NATRIUMCHLORID [Concomitant]
     Indication: ELECTROLYTE SUBSTITUTION THERAPY
     Route: 042
     Dates: start: 20041024, end: 20041027
  42. KALINOR                            /00031402/ [Concomitant]
     Dosage: DOSE: 1-1-1, 1-1-2, 2-2-2
     Route: 048
     Dates: start: 20041025, end: 20041027
  43. KALINOR                            /00031402/ [Concomitant]
     Dosage: DOSE: 1-1-1, 1-1-2, 2-2-2
     Route: 048
     Dates: start: 20041101, end: 20041101
  44. K CL TAB [Concomitant]
     Indication: HYPOKALAEMIA
     Route: 042
     Dates: start: 20041027, end: 20041027
  45. K CL TAB [Concomitant]
     Route: 042
     Dates: start: 20041102, end: 20041104
  46. FUROSEMIDE [Concomitant]
     Indication: POLYURIA
     Route: 048
     Dates: start: 20041101, end: 20041101
  47. RAMIPRIL COMP [Concomitant]
     Indication: HYPERTENSION
     Dosage: DOSE: 5/25 HALF A TABLET
     Route: 048
     Dates: start: 20041101, end: 20041102
  48. METOPROLOL RETARD [Concomitant]
     Indication: HYPERTENSION
     Route: 048
     Dates: start: 20041101, end: 20041107
  49. GLUCOSE [Concomitant]
     Indication: HYPOGLYCAEMIA
     Dosage: DOSE: NOT REPORTED
     Route: 042
     Dates: start: 20041102, end: 20041102
  50. GLUCOSE [Concomitant]
     Dosage: DOSE: NOT REPORTED
     Route: 042
     Dates: start: 20041108, end: 20041108
  51. FURESIS [Concomitant]
     Indication: POLYURIA
     Route: 042
     Dates: start: 20041102
  52. JONOSTERIL                         /00351401/ [Concomitant]
     Indication: ELECTROLYTE SUBSTITUTION THERAPY
     Dosage: DOSE: 1000 ML - 2000 ML
     Route: 042
     Dates: start: 20041102
  53. DIPIPERON [Concomitant]
     Indication: CONFUSIONAL STATE
     Route: 048
     Dates: start: 20041103, end: 20041104
  54. FERRO SANOL DUODENAL [Concomitant]
     Indication: ELECTROLYTE SUBSTITUTION THERAPY
     Route: 048
     Dates: start: 20041103, end: 20041107
  55. HALOPERIDOL [Concomitant]
     Indication: CONFUSIONAL STATE
     Route: 048
     Dates: start: 20041104, end: 20041105
  56. FENISTIL [Concomitant]
     Indication: PRURITUS
     Route: 048
     Dates: start: 20041104, end: 20041107
  57. FENISTIL [Concomitant]
     Route: 042
     Dates: start: 20041105, end: 20051105
  58. PROTHAZIN [Concomitant]
     Indication: AGITATION
     Dosage: DOSE: 2X1/2 AMPOULE
     Route: 042
     Dates: start: 20041105, end: 20041108
  59. PREDNISOLUT                        /00016203/ [Concomitant]
     Indication: SWOLLEN TONGUE
     Dosage: DOSE: 1-1-0, 1-0-0, 1-0-1/2
     Route: 042
     Dates: start: 20041105, end: 20041110
  60. UNACID                             /00917901/ [Concomitant]
     Indication: PAROTITIS
     Route: 042
     Dates: start: 20041106, end: 20041106
  61. DIGITOXIN INJ [Concomitant]
     Dosage: DOSE: 1/2 AMPOULE
     Route: 042
     Dates: start: 20041106, end: 20041108
  62. MORPHINE [Concomitant]
     Indication: PAIN
     Dosage: DOSE: NOT REPORTED
     Route: 042
     Dates: start: 20041106, end: 20041109
  63. DIFLUCAN [Concomitant]
     Dosage: DOSE: 1-0-0
     Route: 042
     Dates: start: 20041106, end: 20041110
  64. AMPHO-MORONAL [Concomitant]
     Route: 061
     Dates: start: 20041106
  65. TAVANIC [Concomitant]
     Indication: PAROTITIS
     Route: 042
     Dates: start: 20041107, end: 20041110
  66. POLYSPECTRAN                       /00130201/ [Concomitant]
     Indication: OCULAR HYPERAEMIA
     Dosage: DOSE: 1-1-1
     Route: 061
     Dates: start: 20041108
  67. ZYRTEC [Concomitant]
     Indication: PRURITUS
     Route: 048
     Dates: start: 20041110, end: 20041110
  68. DERMATOP [Concomitant]
     Indication: SKIN DISORDER
     Dosage: DOSE: 1-0-1
     Route: 061
     Dates: start: 20041110, end: 20041110
  69. UNKNOWN DRUG [Concomitant]
     Dosage: DOSE QUANTITY: 0.01
     Route: 058
     Dates: start: 20041110, end: 20041110

REACTIONS (11)
  - BLISTER [None]
  - CONJUNCTIVITIS [None]
  - LIP EROSION [None]
  - MOUTH ULCERATION [None]
  - NIKOLSKY'S SIGN [None]
  - OCULAR HYPERAEMIA [None]
  - PNEUMONIA [None]
  - PRURITUS [None]
  - SKIN REACTION [None]
  - STEVENS-JOHNSON SYNDROME [None]
  - SWOLLEN TONGUE [None]
